FAERS Safety Report 5802982-X (Version None)
Quarter: 2008Q3

REPORT INFORMATION
  Report Type: 
  Country: None (occurrence: None)
  Receive Date: 20080708
  Receipt Date: 20080630
  Transmission Date: 20090109
  Serious: Yes (Hospitalization)
  Sender: FDA-Public Use
  Company Number: FR-ASTRAZENECA-2008CG01015

PATIENT
  Sex: Male

DRUGS (3)
  1. TENORMIN [Suspect]
     Indication: INFARCTION
     Route: 048
     Dates: end: 20080601
  2. TENORMIN [Suspect]
     Route: 048
     Dates: start: 20080613, end: 20080613
  3. TENORMIN [Suspect]
     Route: 048
     Dates: start: 20080630, end: 20080630

REACTIONS (3)
  - ATRIOVENTRICULAR BLOCK [None]
  - INTENTIONAL OVERDOSE [None]
  - SUICIDE ATTEMPT [None]
